FAERS Safety Report 13756781 (Version 1)
Quarter: 2017Q3

REPORT INFORMATION
  Report Type: Not Available
  Country: US (occurrence: US)
  Receive Date: 20170714
  Receipt Date: 20170714
  Transmission Date: 20171127
  Serious: Yes (Other)
  Sender: FDA-Public Use
  Company Number: US-ANIPHARMA-2017-US-007809

PATIENT
  Age: 81 Year
  Sex: Male

DRUGS (5)
  1. NILUTAMIDE TABLETS [Suspect]
     Active Substance: NILUTAMIDE
     Dates: start: 20090123
  2. XTANDI [Suspect]
     Active Substance: ENZALUTAMIDE
     Dosage: 160 MG DAILY
     Route: 048
     Dates: start: 20160316
  3. METRONIDAZOLE. [Suspect]
     Active Substance: METRONIDAZOLE
  4. CIPROFLOXACIN. [Suspect]
     Active Substance: CIPROFLOXACIN
  5. LUPRON [Suspect]
     Active Substance: LEUPROLIDE ACETATE

REACTIONS (17)
  - Arthralgia [Not Recovered/Not Resolved]
  - Feeling abnormal [Not Recovered/Not Resolved]
  - Flatulence [Unknown]
  - Musculoskeletal pain [Not Recovered/Not Resolved]
  - Prostatic specific antigen increased [Unknown]
  - Fatigue [Unknown]
  - Hot flush [Not Recovered/Not Resolved]
  - Diverticulitis [Unknown]
  - Decreased interest [Recovering/Resolving]
  - Burning sensation [Recovering/Resolving]
  - Abnormal dreams [Recovering/Resolving]
  - Hyperhidrosis [Unknown]
  - Insomnia [Unknown]
  - Apathy [Not Recovered/Not Resolved]
  - Pain [Not Recovered/Not Resolved]
  - Somnolence [Recovering/Resolving]
  - Asthenia [Recovering/Resolving]
